FAERS Safety Report 10273082 (Version 1)
Quarter: 2014Q3

REPORT INFORMATION
  Report Type: Spontaneous
  Country: US (occurrence: US)
  Receive Date: 20140702
  Receipt Date: 20140702
  Transmission Date: 20150326
  Serious: Yes (Hospitalization, Other)
  Sender: FDA-Public Use
  Company Number: PHHY2014US079902

PATIENT
  Sex: Male

DRUGS (17)
  1. CLOZAPINE. [Suspect]
     Active Substance: CLOZAPINE
     Dosage: 900 MG, PER DAY
     Dates: start: 2009
  2. DIVALPROEX [Suspect]
     Active Substance: DIVALPROEX SODIUM
     Dosage: 1000 MG, PER DAY
  3. CLOZAPINE. [Suspect]
     Active Substance: CLOZAPINE
     Dosage: 600 MG, PER DAY
  4. RISPERIDONE. [Suspect]
     Active Substance: RISPERIDONE
     Indication: SCHIZOPHRENIA
     Dosage: 6 MG, PER DAY
  5. RISPERIDONE. [Suspect]
     Active Substance: RISPERIDONE
     Dosage: 6 MG, PER DAY
     Dates: start: 2009
  6. PHENYTOIN. [Concomitant]
     Active Substance: PHENYTOIN
     Indication: CONVULSION
     Dates: end: 20090804
  7. HALOPERIDOL. [Suspect]
     Active Substance: HALOPERIDOL
     Indication: SCHIZOPHRENIA
     Dosage: 60 MG, PER DAY
  8. THIOTHIXENE. [Suspect]
     Active Substance: THIOTHIXENE
     Dosage: 45 MG, PER DAY
  9. CLOZAPINE. [Suspect]
     Active Substance: CLOZAPINE
     Dates: start: 20100730
  10. OLANZAPINE. [Suspect]
     Active Substance: OLANZAPINE
     Indication: SCHIZOPHRENIA
     Dosage: 60 MG, PER DAY
  11. HALOPERIDOL DECANOATE. [Concomitant]
     Active Substance: HALOPERIDOL DECANOATE
     Indication: SCHIZOPHRENIA
     Dosage: 300 MG, MONTHLY
     Route: 030
  12. CLOZAPINE. [Suspect]
     Active Substance: CLOZAPINE
     Indication: SCHIZOPHRENIA
     Dates: start: 199506
  13. RISPERIDONE. [Suspect]
     Active Substance: RISPERIDONE
     Dosage: 8 MG, PER DAY
  14. LAMOTRIGINE. [Suspect]
     Active Substance: LAMOTRIGINE
     Indication: SCHIZOPHRENIA
     Dosage: 125 MG, PER DAY
     Dates: start: 20090820
  15. CLOZAPINE. [Suspect]
     Active Substance: CLOZAPINE
     Dosage: 250 MG, PER DAY
  16. LAMOTRIGINE. [Suspect]
     Active Substance: LAMOTRIGINE
     Dosage: 200 MG, PER DAY
  17. OLANZAPINE. [Suspect]
     Active Substance: OLANZAPINE
     Dosage: 40 MG, PER DAY

REACTIONS (11)
  - Ileus [Unknown]
  - Constipation [Recovering/Resolving]
  - Vomiting [Unknown]
  - Faecaloma [Unknown]
  - Abdominal pain [Unknown]
  - Therapeutic response decreased [Unknown]
  - Nausea [Unknown]
  - Intestinal ischaemia [Unknown]
  - Haemorrhagic vasculitis [Unknown]
  - Small intestinal obstruction [Recovered/Resolved]
  - Antipsychotic drug level increased [Unknown]
